FAERS Safety Report 6656872-3 (Version None)
Quarter: 2010Q1

REPORT INFORMATION
  Report Type: 
  Country: None (occurrence: None)
  Receive Date: 20100329
  Receipt Date: 20100329
  Transmission Date: 20100710
  Serious: Yes (Other)
  Sender: FDA-Public Use
  Company Number: None

PATIENT
  Age: 54 Year
  Sex: Female
  Weight: 102.0593 kg

DRUGS (2)
  1. ZANAFLEX [Suspect]
     Indication: INJURY
     Dosage: 2 CAPSULES DAILY AT BEDTIME PO
     Route: 048
     Dates: start: 20100103, end: 20100327
  2. ZANAFLEX [Suspect]
     Indication: SPINAL DISORDER
     Dosage: 2 CAPSULES DAILY AT BEDTIME PO
     Route: 048
     Dates: start: 20100103, end: 20100327

REACTIONS (21)
  - BRONCHITIS [None]
  - DIARRHOEA [None]
  - DIZZINESS [None]
  - DRY MOUTH [None]
  - DYSARTHRIA [None]
  - HEART RATE INCREASED [None]
  - INCORRECT DOSE ADMINISTERED [None]
  - INFECTION [None]
  - INFLUENZA LIKE ILLNESS [None]
  - IRRITABILITY [None]
  - MEMORY IMPAIRMENT [None]
  - MOOD SWINGS [None]
  - MOUTH ULCERATION [None]
  - MUSCLE SPASMS [None]
  - NAUSEA [None]
  - NERVOUSNESS [None]
  - POLLAKIURIA [None]
  - SKIN ULCER [None]
  - SOMNOLENCE [None]
  - STOMATITIS [None]
  - VISION BLURRED [None]
